FAERS Safety Report 25106100 (Version 1)
Quarter: 2025Q1

REPORT INFORMATION
  Report Type: Spontaneous
  Country: CN (occurrence: CN)
  Receive Date: 20250321
  Receipt Date: 20250321
  Transmission Date: 20250408
  Serious: Yes (Life-Threatening)
  Sender: BAYER HEALTHCARE PHARMACEUTICALS INC.
  Company Number: CN-BAYER-2025A038827

PATIENT
  Age: 98 Year
  Sex: Female
  Weight: 48 kg

DRUGS (3)
  1. GLUCOBAY [Interacting]
     Active Substance: ACARBOSE
     Indication: Diabetes mellitus
     Dosage: 0.1 G, QD
     Route: 048
     Dates: start: 20240911, end: 20240929
  2. GLICLAZIDE [Interacting]
     Active Substance: GLICLAZIDE
     Indication: Diabetes mellitus
     Dosage: 60 MG, QD
     Route: 048
     Dates: start: 20240911, end: 20240929
  3. LANTUS [Interacting]
     Active Substance: INSULIN GLARGINE
     Indication: Diabetes mellitus
     Dosage: 10 DF, QD
     Route: 058
     Dates: start: 20240911, end: 20240913

REACTIONS (2)
  - Hypoglycaemia [Recovered/Resolved]
  - Depressed mood [None]

NARRATIVE: CASE EVENT DATE: 20240913
